FAERS Safety Report 12111687 (Version 1)
Quarter: 2016Q1

REPORT INFORMATION
  Report Type: Spontaneous
  Country: FR (occurrence: FR)
  Receive Date: 20160224
  Receipt Date: 20160224
  Transmission Date: 20160526
  Serious: No
  Sender: FDA-Public Use
  Company Number: FR-JAZZ-2015-FR-022111

PATIENT
  Age: 67 Year
  Sex: Male

DRUGS (6)
  1. NAROPEINE [Suspect]
     Active Substance: ROPIVACAINE HYDROCHLORIDE
     Indication: PAIN
     Dosage: 0.25 MG, QH
     Route: 037
  2. PRIALT [Suspect]
     Active Substance: ZICONOTIDE ACETATE
     Indication: PAIN
     Dosage: 0.021 ?G, QH
     Route: 037
     Dates: end: 20140813
  3. PRIALT [Suspect]
     Active Substance: ZICONOTIDE ACETATE
     Dosage: 0.025 ?G, QH
     Route: 037
     Dates: start: 20140813, end: 20140910
  4. MORPHINE [Suspect]
     Active Substance: MORPHINE
     Indication: PAIN
     Dosage: 0.083 MG, QH
     Route: 037
  5. PRIALT [Suspect]
     Active Substance: ZICONOTIDE ACETATE
     Dosage: 0.033 ?G, QH
     Route: 037
     Dates: start: 20140910, end: 20140915
  6. PRIALT [Suspect]
     Active Substance: ZICONOTIDE ACETATE
     Dosage: UNK ?G, QH
     Route: 037
     Dates: start: 20140915

REACTIONS (1)
  - Decreased appetite [Recovered/Resolved]

NARRATIVE: CASE EVENT DATE: 20140915
